FAERS Safety Report 22244014 (Version 1)
Quarter: 2023Q2

REPORT INFORMATION
  Report Type: Spontaneous
  Country: US (occurrence: None)
  Receive Date: 20230419
  Receipt Date: 20230419
  Transmission Date: 20230722
  Serious: Yes (Life-Threatening, Hospitalization, Disabling)
  Sender: FDA-Public Use
  Company Number: None

PATIENT
  Age: 68 Year
  Sex: Female
  Weight: 83.91 kg

DRUGS (9)
  1. SALONPAS (CAMPHOR (SYNTHETIC)\MENTHOL\METHYL SALICYLATE) [Suspect]
     Active Substance: CAMPHOR (SYNTHETIC)\MENTHOL\METHYL SALICYLATE
     Indication: Osteoarthritis
     Dosage: OTHER QUANTITY : 1 PATCH;?OTHER FREQUENCY : NOT MORE THAN 3-4 ;?
     Route: 061
     Dates: start: 20220301, end: 20220501
  2. ZYRTEC [Concomitant]
     Active Substance: CETIRIZINE HYDROCHLORIDE
  3. ASTA-PRD [Concomitant]
  4. VITAMINS [Concomitant]
     Active Substance: VITAMINS
  5. FISH OIL [Concomitant]
     Active Substance: FISH OIL
  6. ELOQUIS [Concomitant]
     Dosage: FREQUENCY : TWICE A DAY;?
  7. DILITIZAM 250MG [Concomitant]
     Dosage: FREQUENCY : DAILY;?
  8. PANTOPROZEROLE 40MG [Concomitant]
     Dosage: FREQUENCY : TWICE A DAY;?
  9. DEVICE [Concomitant]
     Active Substance: DEVICE
     Dosage: FREQUENCY : AT BEDTIME;?

REACTIONS (5)
  - Cerebrovascular accident [None]
  - Cardiac disorder [None]
  - Atrial fibrillation [None]
  - Gastrointestinal haemorrhage [None]
  - Unevaluable event [None]

NARRATIVE: CASE EVENT DATE: 19220209
